FAERS Safety Report 9785481 (Version 1)
Quarter: 2013Q4

REPORT INFORMATION
  Report Type: Spontaneous
  Country: DE (occurrence: DE)
  Receive Date: 20131227
  Receipt Date: 20131227
  Transmission Date: 20140711
  Serious: Yes (Other)
  Sender: FDA-Public Use
  Company Number: DE-009507513-1312DEU008190

PATIENT
  Age: 24 Year
  Sex: Female

DRUGS (2)
  1. NUVARING [Suspect]
     Indication: CONTRACEPTION
     Dosage: UNK
     Route: 067
     Dates: start: 2008
  2. QUENSYL [Concomitant]

REACTIONS (1)
  - Systemic lupus erythematosus [Recovering/Resolving]
